FAERS Safety Report 5284977-0 (Version None)
Quarter: 2007Q1

REPORT INFORMATION
  Report Type: 
  Country: None (occurrence: None)
  Receive Date: 20061229
  Receipt Date: 20060912
  Transmission Date: 20070707
  Serious: Yes (Other)
  Sender: FDA-Public Use
  Company Number: 2006UW17885

PATIENT
  Age: 62 Year
  Sex: Male
  Weight: 79.373 kg

DRUGS (13)
  1. CRESTOR [Suspect]
     Indication: BLOOD CHOLESTEROL INCREASED
     Dosage: 10 MG QD PO
     Route: 048
     Dates: start: 20060202, end: 20060901
  2. NIASPAN [Concomitant]
  3. ZETIA [Concomitant]
  4. PLAVIX [Concomitant]
  5. TOPROL-XL [Concomitant]
  6. ALTACE [Concomitant]
  7. ASPIRIN [Concomitant]
  8. SYNTHROID [Concomitant]
  9. SINGULAIR [Concomitant]
  10. ADVAIR DISKUS 100/50 [Concomitant]
  11. NITROSTAT [Concomitant]
  12. OMEGA 3 [Concomitant]
  13. M.V.I. [Concomitant]

REACTIONS (4)
  - DYSPNOEA [None]
  - ENZYME ABNORMALITY [None]
  - MYALGIA [None]
  - PYREXIA [None]
